FAERS Safety Report 7710189-4 (Version None)
Quarter: 2011Q3

REPORT INFORMATION
  Report Type: 
  Country: None (occurrence: None)
  Receive Date: 20110825
  Receipt Date: 20110711
  Transmission Date: 20111222
  Serious: Yes (Other)
  Sender: FDA-Public Use
  Company Number: US-MYLANLABS-2011S1014385

PATIENT
  Age: 55 Year
  Sex: Female

DRUGS (3)
  1. LEVETIRACETAM [Suspect]
     Indication: CONVULSION
     Route: 048
  2. ACARBOSE [Suspect]
     Indication: BLOOD GLUCOSE DECREASED
     Route: 048
     Dates: start: 20110705
  3. LYSINE [Concomitant]

REACTIONS (2)
  - CONVULSION [None]
  - DRUG INEFFECTIVE FOR UNAPPROVED INDICATION [None]
